FAERS Safety Report 8561930-2 (Version None)
Quarter: 2012Q3

REPORT INFORMATION
  Report Type: 
  Country: None (occurrence: None)
  Receive Date: 20120802
  Receipt Date: 20060112
  Transmission Date: 20120928
  Serious: Yes (Hospitalization, Other)
  Sender: FDA-Public Use
  Company Number: PHHO2005CA05574

PATIENT
  Sex: Female

DRUGS (4)
  1. SANDOSTATIN LAR [Suspect]
     Indication: CARCINOID TUMOUR
     Dosage: 40 MG, EVERY 3 WEEKS
     Route: 030
     Dates: start: 20040826
  2. SYNTHROID [Concomitant]
  3. DIAMICRON [Concomitant]
  4. VITAMIN B-12 [Concomitant]

REACTIONS (12)
  - INCISIONAL HERNIA [None]
  - PYREXIA [None]
  - NAUSEA [None]
  - DIZZINESS [None]
  - PROCEDURAL PAIN [None]
  - HOT FLUSH [None]
  - BONE PAIN [None]
  - PAIN [None]
  - PROCEDURAL NAUSEA [None]
  - GASTROINTESTINAL DISORDER [None]
  - FATIGUE [None]
  - HEART RATE DECREASED [None]
